FAERS Safety Report 17882792 (Version 3)
Quarter: 2020Q4

REPORT INFORMATION
  Report Type: Spontaneous
  Country: US (occurrence: US)
  Receive Date: 20200610
  Receipt Date: 20201104
  Transmission Date: 20210113
  Serious: Yes (Other)
  Sender: FDA-Public Use
  Company Number: US-BEH-2020118472

PATIENT
  Age: 54 Year
  Sex: Female

DRUGS (3)
  1. HAEGARDA [Suspect]
     Active Substance: HUMAN C1-ESTERASE INHIBITOR
     Indication: PROPHYLAXIS
     Dosage: IU/KG 2TW
     Route: 058
     Dates: start: 20200825, end: 20200825
  2. HAEGARDA [Suspect]
     Active Substance: HUMAN C1-ESTERASE INHIBITOR
     Dosage: IU/KG 2TW
     Route: 058
     Dates: start: 20201029, end: 20201029
  3. HAEGARDA [Suspect]
     Active Substance: HUMAN C1-ESTERASE INHIBITOR
     Indication: HEREDITARY ANGIOEDEMA
     Dosage: 7200 INTERNATIONAL UNIT, BIW
     Route: 058
     Dates: start: 20171005

REACTIONS (5)
  - No adverse event [Recovering/Resolving]
  - Therapy interrupted [Recovering/Resolving]
  - Hereditary angioedema [Recovering/Resolving]
  - Hereditary angioedema [Recovered/Resolved]
  - Insurance issue [Recovering/Resolving]

NARRATIVE: CASE EVENT DATE: 20200512
